FAERS Safety Report 5674716-3 (Version None)
Quarter: 2008Q1

REPORT INFORMATION
  Report Type: 
  Country: None (occurrence: None)
  Receive Date: 20080320
  Receipt Date: 20080314
  Transmission Date: 20080703
  Serious: Yes (Other)
  Sender: FDA-Public Use
  Company Number: D0056420A

PATIENT
  Age: 46 Year
  Sex: Female

DRUGS (2)
  1. ATMADISC [Suspect]
     Dosage: 2UNIT TWICE PER DAY
     Route: 055
     Dates: start: 20000901, end: 20080101
  2. VIANI [Suspect]
     Route: 055
     Dates: start: 20000101, end: 20010101

REACTIONS (1)
  - MIGRAINE [None]
